FAERS Safety Report 18375889 (Version 2)
Quarter: 2022Q1

REPORT INFORMATION
  Report Type: Spontaneous
  Country: US (occurrence: US)
  Receive Date: 20201013
  Receipt Date: 20220314
  Transmission Date: 20220424
  Serious: Yes (Other)
  Sender: FDA-Public Use
  Company Number: US-SAARTEMIS-SAC202010080480

PATIENT
  Age: 66 Year
  Sex: Female

DRUGS (1)
  1. ZANTAC [Suspect]
     Active Substance: RANITIDINE HYDROCHLORIDE
     Indication: Dyspepsia
     Dosage: UNK
     Route: 065
     Dates: start: 200401, end: 201201

REACTIONS (2)
  - Lung neoplasm malignant [Unknown]
  - Brain neoplasm malignant [Unknown]

NARRATIVE: CASE EVENT DATE: 20170101
